FAERS Safety Report 8259046-8 (Version None)
Quarter: 2012Q2

REPORT INFORMATION
  Report Type: 
  Country: None (occurrence: None)
  Receive Date: 20120404
  Receipt Date: 20120330
  Transmission Date: 20120825
  Serious: Yes (Life-Threatening)
  Sender: FDA-Public Use
  Company Number: CA-ROCHE-1054709

PATIENT
  Age: 56 Year
  Sex: Male

DRUGS (4)
  1. AVASTIN [Suspect]
     Indication: PRODUCT USED FOR UNKNOWN INDICATION
     Route: 065
  2. ELOXATIN [Concomitant]
     Route: 065
  3. LEUCOVORIN CALCIUM [Concomitant]
     Route: 065
  4. FLUOROURACIL [Concomitant]
     Route: 040

REACTIONS (4)
  - DYSPNOEA [None]
  - CARDIAC FAILURE [None]
  - EJECTION FRACTION DECREASED [None]
  - TACHYCARDIA [None]
